FAERS Safety Report 22085018 (Version 2)
Quarter: 2023Q1

REPORT INFORMATION
  Report Type: Spontaneous
  Country: US (occurrence: US)
  Receive Date: 20230310
  Receipt Date: 20230328
  Transmission Date: 20230418
  Serious: Yes (Death)
  Sender: FDA-Public Use
  Company Number: US-PFIZER INC-202300100591

PATIENT
  Age: 59 Year
  Sex: Male

DRUGS (3)
  1. INDOMETHACIN [Suspect]
     Active Substance: INDOMETHACIN
     Indication: Inflammation
     Dosage: UNK
  2. COLCHICINE [Suspect]
     Active Substance: COLCHICINE
     Indication: Inflammation
     Dosage: UNK
  3. HUMAN IMMUNOGLOBULIN G [Suspect]
     Active Substance: HUMAN IMMUNOGLOBULIN G
     Indication: Inflammation
     Dosage: UNK

REACTIONS (3)
  - Drug ineffective for unapproved indication [Fatal]
  - Off label use [Unknown]
  - Off label use [Unknown]
